FAERS Safety Report 7337566-8 (Version None)
Quarter: 2011Q1

REPORT INFORMATION
  Report Type: 
  Country: None (occurrence: None)
  Receive Date: 20110308
  Receipt Date: 20110209
  Transmission Date: 20110831
  Serious: No
  Sender: FDA-Public Use
  Company Number: US-B.I. PHARMACEUTICALS,INC./RIDGEFIELD-2011-BP-05231BP

PATIENT
  Sex: Male

DRUGS (4)
  1. LIPITOR [Concomitant]
     Indication: PROPHYLAXIS
     Dosage: 20 MG
     Route: 048
  2. SPIRIVA [Suspect]
     Indication: CHRONIC OBSTRUCTIVE PULMONARY DISEASE
     Dosage: 18 MCG
     Route: 055
     Dates: start: 20101201
  3. BENAZEPRIL [Concomitant]
     Indication: PROPHYLAXIS
     Dosage: 5 MG
     Route: 048
  4. TERAZOSIN [Concomitant]
     Indication: PROSTATIC DISORDER
     Dosage: 2 MG
     Route: 048

REACTIONS (2)
  - DYSPNOEA [None]
  - COUGH [None]
